FAERS Safety Report 8334074-2 (Version None)
Quarter: 2012Q1

REPORT INFORMATION
  Report Type: 
  Country: None (occurrence: None)
  Receive Date: 20120328
  Receipt Date: 20100414
  Transmission Date: 20120608
  Serious: Yes (Other)
  Sender: FDA-Public Use
  Company Number: PHHY2010US23546

PATIENT
  Age: 62 Year
  Sex: Female

DRUGS (1)
  1. VALTURNA [Suspect]
     Indication: BLOOD PRESSURE
     Dosage: 150/120 DAILY, ORAL
     Route: 048
     Dates: start: 20100405

REACTIONS (3)
  - PHARYNGEAL OEDEMA [None]
  - HYPERSENSITIVITY [None]
  - DIZZINESS [None]
